FAERS Safety Report 4489167-7 (Version None)
Quarter: 2004Q4

REPORT INFORMATION
  Report Type: 
  Country: None (occurrence: None)
  Receive Date: 20041029
  Receipt Date: 20041019
  Transmission Date: 20050328
  Serious: Yes (Disabling)
  Sender: FDA-Public Use
  Company Number: US-MERCK-0410USA02955

PATIENT
  Age: 66 Year
  Sex: Female

DRUGS (2)
  1. VIOXX [Suspect]
     Indication: ARTHRITIS
     Route: 048
     Dates: start: 20010201, end: 20040801
  2. NORVASC [Concomitant]
     Route: 065

REACTIONS (3)
  - MUSCLE CRAMP [None]
  - OEDEMA PERIPHERAL [None]
  - PYREXIA [None]
